FAERS Safety Report 5340465-4 (Version None)
Quarter: 2007Q2

REPORT INFORMATION
  Report Type: 
  Country: None (occurrence: None)
  Receive Date: 20070531
  Receipt Date: 20070519
  Transmission Date: 20071010
  Serious: Yes (Other)
  Sender: FDA-Public Use
  Company Number: US-PFIZER INC-2007028928

PATIENT
  Sex: Female

DRUGS (18)
  1. LYRICA [Suspect]
     Indication: DIABETIC NEUROPATHY
     Route: 048
     Dates: start: 20070325, end: 20070101
  2. PREVACID [Concomitant]
  3. PLAVIX [Concomitant]
  4. LASIX [Concomitant]
  5. DIGITEK [Concomitant]
  6. ALTACE [Concomitant]
  7. FOSAMAX [Concomitant]
  8. LOVASTATIN [Concomitant]
  9. VICODIN [Concomitant]
  10. COREG [Concomitant]
  11. IRON [Concomitant]
  12. NYSTATIN [Concomitant]
  13. ALDACTONE [Concomitant]
  14. MAGNESIUM SULFATE [Concomitant]
  15. ALLEGRA [Concomitant]
  16. COUMADIN [Concomitant]
  17. ASCORBIC ACID [Concomitant]
  18. LEVOXYL [Concomitant]

REACTIONS (4)
  - DIZZINESS [None]
  - FALL [None]
  - FATIGUE [None]
  - SOMNOLENCE [None]
